FAERS Safety Report 8973413 (Version 1)
Quarter: 2012Q4

REPORT INFORMATION
  Report Type: 
  Country: US (occurrence: US)
  Receive Date: 20121218
  Receipt Date: 20121218
  Transmission Date: 20130627
  Serious: Yes (Other)
  Sender: FDA-Public Use
  Company Number: US-ABBOTT-12P-163-1020258-00

PATIENT
  Age: 75 Year
  Sex: Male

DRUGS (4)
  1. HYTRIN [Suspect]
     Indication: PRODUCT USED FOR UNKNOWN INDICATION
     Dosage: Unknown
  2. FINASTERIDE [Suspect]
     Indication: HYPERTENSION
     Dosage: Unknown
     Dates: start: 200905
  3. LOTESIN [Suspect]
     Indication: HYPERTENSION
     Dosage: Unknown
     Dates: start: 200905
  4. NIFEDIPINE ER [Suspect]
     Indication: PRODUCT USED FOR UNKNOWN INDICATION
     Dosage: Extended Release

REACTIONS (3)
  - Gallbladder operation [Unknown]
  - Blood pressure abnormal [Unknown]
  - Diarrhoea [Unknown]
